FAERS Safety Report 23986994 (Version 1)
Quarter: 2024Q2

REPORT INFORMATION
  Report Type: Spontaneous
  Country: US (occurrence: US)
  Receive Date: 20240618
  Receipt Date: 20240618
  Transmission Date: 20240715
  Serious: No
  Sender: FDA-Public Use
  Company Number: US-SA-SAC20240618000167

PATIENT
  Age: 8 Year
  Sex: Female

DRUGS (1)
  1. REZUROCK [Suspect]
     Active Substance: BELUMOSUDIL
     Indication: Graft versus host disease in skin
     Dosage: 200 MG, QD
     Route: 048

REACTIONS (4)
  - Lung disorder [Unknown]
  - Oxygen consumption increased [Unknown]
  - Inflammation [Unknown]
  - Product use issue [Unknown]
